FAERS Safety Report 9363468 (Version 1)
Quarter: 2013Q2

REPORT INFORMATION
  Report Type: Spontaneous
  Country: US (occurrence: US)
  Receive Date: 20130624
  Receipt Date: 20130624
  Transmission Date: 20140414
  Serious: No
  Sender: FDA-Public Use
  Company Number: US-ASTRAZENECA-2013SE42872

PATIENT
  Age: 61 Year
  Sex: Female
  Weight: 61.7 kg

DRUGS (6)
  1. SYMBICORT [Suspect]
     Indication: CHRONIC OBSTRUCTIVE PULMONARY DISEASE
     Dosage: 160 MCG 2 PUFFS, TWICE DAILY
     Route: 055
     Dates: start: 20130605, end: 20130608
  2. SYMBICORT [Suspect]
     Indication: CHRONIC OBSTRUCTIVE PULMONARY DISEASE
     Dosage: 160 MCG 1 PUFF, DAILY
     Route: 055
     Dates: start: 20130609
  3. VISTARIL [Suspect]
     Indication: DEPRESSION
     Route: 048
     Dates: start: 20130605
  4. CYMBALTA [Suspect]
     Indication: DEPRESSION
     Route: 048
     Dates: start: 20130605
  5. SYNTHROID [Concomitant]
     Indication: THYROID DISORDER
     Dosage: 125 DAILY
     Route: 048
     Dates: start: 1973
  6. NEURONTIN [Concomitant]
     Indication: NEUROPATHY PERIPHERAL
     Route: 048
     Dates: start: 201301

REACTIONS (9)
  - Hypersomnia [Unknown]
  - Feeling abnormal [Unknown]
  - Oral mucosal blistering [Unknown]
  - Throat tightness [Unknown]
  - Asthenia [Unknown]
  - Paraesthesia [Unknown]
  - Pharyngeal disorder [Unknown]
  - Tremor [Unknown]
  - Drug ineffective [Unknown]
